FAERS Safety Report 8731047 (Version 2)
Quarter: 2013Q4

REPORT INFORMATION
  Report Type: Spontaneous
  Country: FR (occurrence: FR)
  Receive Date: 20120820
  Receipt Date: 20131115
  Transmission Date: 20140711
  Serious: Yes (Hospitalization, Disabling)
  Sender: FDA-Public Use
  Company Number: FR-AMGEN-FRASP2012051844

PATIENT
  Age: 46 Year
  Sex: Male

DRUGS (3)
  1. ENBREL [Suspect]
     Indication: ANKYLOSING SPONDYLITIS
     Dosage: UNK
     Route: 058
     Dates: start: 200802, end: 2010
  2. ENBREL [Suspect]
     Dosage: UNK
     Route: 065
     Dates: start: 2011
  3. METHOTREXATE [Concomitant]
     Indication: ANKYLOSING SPONDYLITIS
     Dosage: UNK

REACTIONS (5)
  - Sudden hearing loss [Not Recovered/Not Resolved]
  - Deafness [Recovered/Resolved]
  - Tinnitus [Unknown]
  - Vertigo [Recovered/Resolved]
  - Arthritis [Unknown]
